FAERS Safety Report 5014809-7 (Version None)
Quarter: 2006Q2

REPORT INFORMATION
  Report Type: 
  Country: None (occurrence: None)
  Receive Date: 20060414
  Receipt Date: 20051223
  Transmission Date: 20061013
  Serious: No
  Sender: FDA-Public Use
  Company Number: 2005SP004520

PATIENT
  Age: 85 Year
  Sex: Male
  Weight: 77.1115 kg

DRUGS (2)
  1. LUNESTA [Suspect]
     Dosage: 2 MG;1X;ORAL
     Route: 048
     Dates: start: 20051201, end: 20051201
  2. RESTORIL [Concomitant]

REACTIONS (1)
  - PARADOXICAL DRUG REACTION [None]
